FAERS Safety Report 13743970 (Version 4)
Quarter: 2018Q1

REPORT INFORMATION
  Report Type: Report from Study
  Country: AU (occurrence: AU)
  Receive Date: 20170712
  Receipt Date: 20180228
  Transmission Date: 20180508
  Serious: Yes (Other)
  Sender: FDA-Public Use
  Company Number: AU-BIOGEN-2016BI00296000

PATIENT
  Age: 54 Year
  Sex: Female

DRUGS (11)
  1. TECFIDERA [Suspect]
     Active Substance: DIMETHYL FUMARATE
     Indication: MULTIPLE SCLEROSIS
     Dosage: STARTING DOSE
     Route: 048
     Dates: start: 20160912
  2. TECFIDERA [Suspect]
     Active Substance: DIMETHYL FUMARATE
     Dosage: MAINTENANCE DOSE
     Route: 048
     Dates: start: 20161003
  3. TECFIDERA [Suspect]
     Active Substance: DIMETHYL FUMARATE
     Dosage: MAINTENANCE DOSE
     Route: 048
     Dates: start: 201610
  4. TECFIDERA [Suspect]
     Active Substance: DIMETHYL FUMARATE
     Dosage: STARTING DOSE
     Route: 048
     Dates: start: 20161013
  5. TECFIDERA [Suspect]
     Active Substance: DIMETHYL FUMARATE
     Dosage: STARTING DOSE
     Route: 048
     Dates: end: 20160918
  6. TECFIDERA [Suspect]
     Active Substance: DIMETHYL FUMARATE
     Dosage: 240 MG NOCTE
     Route: 048
     Dates: start: 20160926
  7. TECFIDERA [Suspect]
     Active Substance: DIMETHYL FUMARATE
     Route: 048
     Dates: end: 20161002
  8. METHYLPREDNISOLONE. [Concomitant]
     Active Substance: METHYLPREDNISOLONE
     Indication: MULTIPLE SCLEROSIS
     Route: 042
     Dates: start: 20161028, end: 20161030
  9. TECFIDERA [Suspect]
     Active Substance: DIMETHYL FUMARATE
     Dosage: MAINTENANCE DOSE
     Route: 048
     Dates: start: 20160913
  10. TECFIDERA [Suspect]
     Active Substance: DIMETHYL FUMARATE
     Dosage: MAINTENANCE DOSE
     Route: 048
     Dates: start: 20160919
  11. TECFIDERA [Suspect]
     Active Substance: DIMETHYL FUMARATE
     Dosage: 120 MG MANE
     Route: 048
     Dates: start: 20160926

REACTIONS (41)
  - Gait disturbance [Unknown]
  - Anxiety [Unknown]
  - Muscular weakness [Not Recovered/Not Resolved]
  - Balance disorder [Recovered/Resolved]
  - Pyrexia [Not Recovered/Not Resolved]
  - Coordination abnormal [Unknown]
  - Feeling hot [Not Recovered/Not Resolved]
  - Flushing [Recovered/Resolved]
  - Dizziness [Unknown]
  - Sensory disturbance [Not Recovered/Not Resolved]
  - Dyspnoea [Recovered/Resolved]
  - Aphasia [Unknown]
  - Groin abscess [Recovered/Resolved with Sequelae]
  - Neurodegenerative disorder [Not Recovered/Not Resolved]
  - Diarrhoea [Unknown]
  - Stress [Unknown]
  - Emotional disorder [Unknown]
  - Muscle rigidity [Not Recovered/Not Resolved]
  - Pain in extremity [Recovered/Resolved]
  - Hypersomnia [Unknown]
  - Fatigue [Recovered/Resolved]
  - Memory impairment [Not Recovered/Not Resolved]
  - Muscle spasms [Not Recovered/Not Resolved]
  - Dementia Alzheimer^s type [Not Recovered/Not Resolved]
  - Insomnia [Unknown]
  - Speech disorder [Unknown]
  - Neutropenia [Recovered/Resolved]
  - Drug dose omission [Unknown]
  - Gastric banding [Unknown]
  - Underdose [Unknown]
  - Hot flush [Recovered/Resolved]
  - Cerebral atrophy [Unknown]
  - Malaise [Not Recovered/Not Resolved]
  - Emotional distress [Unknown]
  - Hypoaesthesia [Unknown]
  - Palpitations [Recovered/Resolved]
  - Iron deficiency [Not Recovered/Not Resolved]
  - Cognitive disorder [Not Recovered/Not Resolved]
  - Hypoacusis [Not Recovered/Not Resolved]
  - Multiple sclerosis [Recovered/Resolved]
  - Therapy non-responder [Unknown]

NARRATIVE: CASE EVENT DATE: 20160919
